FAERS Safety Report 12360015 (Version 1)
Quarter: 2016Q2

REPORT INFORMATION
  Report Type: Spontaneous
  Country: US (occurrence: US)
  Receive Date: 20160512
  Receipt Date: 20160512
  Transmission Date: 20160815
  Serious: Yes (Other)
  Sender: FDA-Public Use
  Company Number: ADR-2015-01359

PATIENT
  Age: 23 Year
  Sex: Male

DRUGS (5)
  1. LIORESAL [Suspect]
     Active Substance: BACLOFEN
     Dosage: 1400 MCG/DAY
     Route: 037
  2. PROPOFOL. [Suspect]
     Active Substance: PROPOFOL
     Dosage: GIVEN DURING TRIAL
  3. PRESERVATIVE FREE NORMAL SALINE [Suspect]
     Active Substance: SODIUM CHLORIDE
     Route: 037
  4. UNSPECIFIED MEDICATIONS [Suspect]
     Active Substance: UNSPECIFIED INGREDIENT
  5. BOTOX [Suspect]
     Active Substance: ONABOTULINUMTOXINA

REACTIONS (4)
  - No therapeutic response [Recovered/Resolved with Sequelae]
  - Hypotonia [Recovered/Resolved with Sequelae]
  - Device infusion issue [None]
  - Device issue [None]
